FAERS Safety Report 15128860 (Version 1)
Quarter: 2018Q3

REPORT INFORMATION
  Report Type: Spontaneous
  Country: CN (occurrence: CN)
  Receive Date: 20180711
  Receipt Date: 20180711
  Transmission Date: 20181010
  Serious: Yes (Hospitalization, Disabling)
  Sender: FDA-Public Use
  Company Number: CN-BAXTER-2018BAX018832

PATIENT
  Age: 70 Year
  Sex: Male
  Weight: 74 kg

DRUGS (2)
  1. 0.9% SODIUM CHLORIDE INJECTION [Suspect]
     Active Substance: SODIUM CHLORIDE
     Indication: MEDICATION DILUTION
     Dosage: SOLVENT FOR TAXOTERE
     Route: 041
     Dates: start: 20180511, end: 20180511
  2. TAXOTERE [Suspect]
     Active Substance: DOCETAXEL
     Indication: OESOPHAGEAL CARCINOMA
     Route: 041
     Dates: start: 20180511, end: 20180511

REACTIONS (2)
  - Leukopenia [Recovered/Resolved]
  - Pyrexia [Recovered/Resolved]

NARRATIVE: CASE EVENT DATE: 20180517
